FAERS Safety Report 10927069 (Version 1)
Quarter: 2015Q1

REPORT INFORMATION
  Report Type: Report from Study
  Country: FR (occurrence: FR)
  Receive Date: 20150318
  Receipt Date: 20150318
  Transmission Date: 20150721
  Serious: Yes (Death, Hospitalization)
  Sender: FDA-Public Use
  Company Number: FR-CUBIST PHARMACEUTICALS, INC.-20150071

PATIENT
  Age: 72 Year
  Sex: Female
  Weight: 67 kg

DRUGS (5)
  1. VANCOMYCIN [Concomitant]
     Active Substance: VANCOMYCIN
     Dosage: UNK
     Dates: start: 20141211, end: 20141226
  2. DIFICLIR [Suspect]
     Active Substance: FIDAXOMICIN
     Dosage: 1 TABLET IN THE EVENING
     Dates: start: 20150104, end: 20150104
  3. DIFICLIR [Suspect]
     Active Substance: FIDAXOMICIN
     Dosage: 1 TABLET IN THE MORNING
     Dates: start: 20150105, end: 20150105
  4. DIFICLIR [Suspect]
     Active Substance: FIDAXOMICIN
     Indication: CLOSTRIDIUM DIFFICILE INFECTION
     Dosage: 400 MG, DAILY
     Dates: start: 20140911, end: 20140921
  5. VANCOMYCIN [Concomitant]
     Active Substance: VANCOMYCIN
     Indication: CLOSTRIDIUM DIFFICILE INFECTION
     Dosage: 1 G, DAILY

REACTIONS (6)
  - General physical health deterioration [Unknown]
  - Pyelonephritis acute [Recovered/Resolved]
  - Clostridium difficile infection [Not Recovered/Not Resolved]
  - Multi-organ failure [Fatal]
  - Acute kidney injury [Fatal]
  - Blood creatinine increased [Unknown]

NARRATIVE: CASE EVENT DATE: 20141113
